FAERS Safety Report 6742616-3 (Version None)
Quarter: 2010Q2

REPORT INFORMATION
  Report Type: 
  Country: None (occurrence: None)
  Receive Date: 20100524
  Receipt Date: 20100407
  Transmission Date: 20101027
  Serious: No
  Sender: FDA-Public Use
  Company Number: ACO_00681_2010

PATIENT
  Age: 58 Year
  Sex: Female
  Weight: 72.5755 kg

DRUGS (6)
  1. AMPYRA [Suspect]
     Indication: MULTIPLE SCLEROSIS
     Dosage: (10 MG QD ORAL)
     Route: 048
     Dates: start: 20100329
  2. BACLOFEN [Concomitant]
  3. TYSABRI [Concomitant]
  4. ZOLOFT [Concomitant]
  5. DDAVP [Concomitant]
  6. MACROBID [Concomitant]

REACTIONS (6)
  - CONDITION AGGRAVATED [None]
  - DRUG INEFFECTIVE [None]
  - FEELING JITTERY [None]
  - INAPPROPRIATE SCHEDULE OF DRUG ADMINISTRATION [None]
  - PARAESTHESIA [None]
  - PRODUCT QUALITY ISSUE [None]
